FAERS Safety Report 9007065 (Version 2)
Quarter: 2013Q1

REPORT INFORMATION
  Report Type: Spontaneous
  Country: US (occurrence: US)
  Receive Date: 20130110
  Receipt Date: 20130118
  Transmission Date: 20140127
  Serious: Yes (Death)
  Sender: FDA-Public Use
  Company Number: US-PFIZER INC-2013007044

PATIENT
  Age: 53 Year
  Sex: Female

DRUGS (4)
  1. OXYCODONE HYDROCHLORIDE [Suspect]
  2. DIAZEPAM [Suspect]
  3. CARISOPRODOL [Suspect]
  4. MEPROBAMATE [Suspect]

REACTIONS (1)
  - Drug abuse [Fatal]
